FAERS Safety Report 7325705-4 (Version None)
Quarter: 2011Q1

REPORT INFORMATION
  Report Type: 
  Country: None (occurrence: None)
  Receive Date: 20110302
  Receipt Date: 20110204
  Transmission Date: 20110831
  Serious: No
  Sender: FDA-Public Use
  Company Number: US-B.I. PHARMACEUTICALS,INC./RIDGEFIELD-2011-BP-03646BP

PATIENT
  Age: 55 Year
  Sex: Male

DRUGS (10)
  1. BUPROPION HCL [Concomitant]
     Indication: ANXIETY
     Dosage: 300 MG
     Route: 048
  2. METOPROLOL [Concomitant]
     Indication: HYPERTENSION
  3. OMEPRAZOLE [Concomitant]
  4. ADVAIR DISKUS 100/50 [Concomitant]
     Indication: CHRONIC OBSTRUCTIVE PULMONARY DISEASE
     Route: 055
  5. METOPROLOL [Concomitant]
     Indication: HEART RATE ABNORMAL
     Dosage: 50 MG
     Route: 048
  6. SPIRIVA [Suspect]
     Indication: CHRONIC OBSTRUCTIVE PULMONARY DISEASE
     Dosage: 18 MCG
     Route: 055
     Dates: start: 20090801
  7. OMEPRAZOLE [Concomitant]
     Indication: DYSPEPSIA
     Dosage: 20 MG
     Route: 048
  8. ENALAPRIL [Concomitant]
     Indication: HYPERTENSION
     Dosage: 10 MG
     Route: 048
  9. TRAZODONE HCL [Concomitant]
     Indication: INSOMNIA
     Dosage: 100 MG
     Route: 048
  10. LEXAPRO [Concomitant]
     Indication: DEPRESSION
     Dosage: 10 MG
     Route: 048

REACTIONS (1)
  - DRUG INEFFECTIVE [None]
